FAERS Safety Report 4717667-0 (Version None)
Quarter: 2005Q3

REPORT INFORMATION
  Report Type: 
  Country: None (occurrence: None)
  Receive Date: 20050713
  Receipt Date: 20050314
  Transmission Date: 20060218
  Serious: Yes (Other)
  Sender: FDA-Public Use
  Company Number: 398795

PATIENT
  Sex: Male

DRUGS (1)
  1. FUZEON [Suspect]

REACTIONS (6)
  - APPLICATION SITE BRUISING [None]
  - FLUSHING [None]
  - INJECTION SITE HAEMORRHAGE [None]
  - INJECTION SITE REACTION [None]
  - MEDICATION ERROR [None]
  - VASODILATATION [None]
